FAERS Safety Report 17726153 (Version 2)
Quarter: 2020Q2

REPORT INFORMATION
  Report Type: Spontaneous
  Country: DE (occurrence: DE)
  Receive Date: 20200429
  Receipt Date: 20200605
  Transmission Date: 20200714
  Serious: Yes (Hospitalization, Other)
  Sender: FDA-Public Use
  Company Number: DE-NOVOPROD-724346

PATIENT
  Age: 13 Year
  Sex: Female
  Weight: 70.3 kg

DRUGS (6)
  1. HIDROCORTIZONA [Concomitant]
     Indication: PRODUCT USED FOR UNKNOWN INDICATION
     Dosage: 17.5 MG, QD (7.5-5-5 MG/DAY)
     Route: 065
  2. NORDITROPIN [Suspect]
     Active Substance: SOMATROPIN
     Indication: GROWTH HORMONE DEFICIENCY
     Dosage: 1.6 MG, QD
     Route: 065
     Dates: start: 20140215
  3. MINIRIN [Concomitant]
     Active Substance: DESMOPRESSIN ACETATE
     Indication: PRODUCT USED FOR UNKNOWN INDICATION
     Dosage: 2 DF QD (1-2 PUFFS/DAY)
     Route: 065
  4. NORDITROPIN [Suspect]
     Active Substance: SOMATROPIN
     Dosage: 1.6 MG, QD
     Route: 065
     Dates: end: 201703
  5. FEMOSTON [Concomitant]
     Active Substance: DYDROGESTERONE\ESTRADIOL
     Indication: PRODUCT USED FOR UNKNOWN INDICATION
     Dosage: 1 DF, QD
     Route: 065
  6. LEVOTHYROXINE. [Concomitant]
     Active Substance: LEVOTHYROXINE
     Indication: PRODUCT USED FOR UNKNOWN INDICATION
     Dosage: 75 ?G, QD
     Route: 065

REACTIONS (12)
  - Confusional state [Unknown]
  - Obesity [Not Recovered/Not Resolved]
  - Seizure [Unknown]
  - Hypothalamo-pituitary disorder [Not Recovered/Not Resolved]
  - Diabetes insipidus [Not Recovered/Not Resolved]
  - Hemianopia [Not Recovered/Not Resolved]
  - Palpitations [Unknown]
  - Visual impairment [Unknown]
  - Dizziness [Unknown]
  - Hypopituitarism [Not Recovered/Not Resolved]
  - Hypophysitis [Not Recovered/Not Resolved]
  - Amnesia [Unknown]

NARRATIVE: CASE EVENT DATE: 201612
